FAERS Safety Report 5764484-9 (Version None)
Quarter: 2008Q2

REPORT INFORMATION
  Report Type: 
  Country: None (occurrence: None)
  Receive Date: 20080610
  Receipt Date: 20080602
  Transmission Date: 20081010
  Serious: Yes (Disabling)
  Sender: FDA-Public Use
  Company Number: GB-PFIZER INC-2006140611

PATIENT
  Age: 72 Year
  Sex: Male

DRUGS (4)
  1. PREDNISOLONE [Suspect]
     Indication: KERATITIS HERPETIC
     Route: 047
  2. TIMOLOL MALEATE [Suspect]
     Indication: KERATITIS HERPETIC
     Route: 047
     Dates: start: 20040601
  3. ACYCLOVIR [Concomitant]
     Route: 048
  4. DIAMOX SRC [Concomitant]

REACTIONS (2)
  - BLINDNESS [None]
  - CORNEAL DEPOSITS [None]
